FAERS Safety Report 9003705 (Version 1)
Quarter: 2013Q1

REPORT INFORMATION
  Report Type: Spontaneous
  Country: US (occurrence: US)
  Receive Date: 20130108
  Receipt Date: 20130108
  Transmission Date: 20140127
  Serious: No
  Sender: FDA-Public Use
  Company Number: US-GLAXOSMITHKLINE-A0964022A

PATIENT
  Age: 63 Year
  Sex: Male

DRUGS (17)
  1. LOVAZA [Suspect]
     Indication: BLOOD TRIGLYCERIDES INCREASED
     Dosage: 1CAP FOUR TIMES PER DAY
     Route: 048
     Dates: start: 20120101
  2. LOSARTAN [Concomitant]
  3. PROTONIX [Concomitant]
  4. HYDROCHLORTHIAZID [Concomitant]
  5. NORVASC [Concomitant]
  6. ATENOLOL [Concomitant]
  7. ALLOPURINOL [Concomitant]
  8. PRAVASTATIN [Concomitant]
  9. EFFEXOR [Concomitant]
  10. BABY ASPIRIN [Concomitant]
  11. MULTI VITAMIN [Concomitant]
  12. FOLIC ACID [Concomitant]
  13. B COMPLEX [Concomitant]
  14. NEURONTIN [Concomitant]
  15. ATIVAN [Concomitant]
  16. GENERLAC SOLUTION [Concomitant]
  17. IBUPROFEN [Concomitant]

REACTIONS (3)
  - Dysgeusia [Not Recovered/Not Resolved]
  - Increased appetite [Unknown]
  - Weight increased [Unknown]
